FAERS Safety Report 10754227 (Version 4)
Quarter: 2017Q2

REPORT INFORMATION
  Report Type: Report from Study
  Country: US (occurrence: US)
  Receive Date: 20150202
  Receipt Date: 20170425
  Transmission Date: 20170829
  Serious: Yes (Hospitalization, Other)
  Sender: FDA-Public Use
  Company Number: US-ALEXION PHARMACEUTICALS INC-A201500331

PATIENT
  Age: 67 Year
  Sex: Female

DRUGS (21)
  1. ECULIZUMAB [Suspect]
     Active Substance: ECULIZUMAB
     Indication: HAEMOLYTIC URAEMIC SYNDROME
     Dosage: 900 MG, QW
     Route: 042
     Dates: start: 20131102, end: 20131122
  2. CEFDINIR. [Concomitant]
     Active Substance: CEFDINIR
     Indication: URINARY TRACT INFECTION
     Dosage: UNK
     Route: 042
     Dates: start: 20140712, end: 20140718
  3. MERREM [Concomitant]
     Active Substance: MEROPENEM
     Indication: PNEUMONIA
     Dosage: UNK
     Route: 042
     Dates: start: 20140813, end: 20140901
  4. MYCAMINE [Concomitant]
     Active Substance: MICAFUNGIN SODIUM
     Indication: BACTERAEMIA
     Dosage: UNK
     Route: 050
     Dates: start: 20140823, end: 20140827
  5. WELLBUTRIN [Concomitant]
     Active Substance: BUPROPION HYDROCHLORIDE
     Indication: PRODUCT USED FOR UNKNOWN INDICATION
     Dosage: 75 MG, BID
     Route: 050
  6. COREG [Concomitant]
     Active Substance: CARVEDILOL
     Dosage: 12.5 MG, BID
     Route: 048
     Dates: start: 20131105, end: 20131105
  7. LEVAQUIN [Concomitant]
     Active Substance: LEVOFLOXACIN
     Indication: URINARY TRACT INFECTION
     Dosage: UNK
     Route: 048
     Dates: start: 20140615, end: 20140618
  8. ANCEF [Concomitant]
     Active Substance: CEFAZOLIN SODIUM
     Dosage: UNK
     Route: 042
     Dates: start: 20140728, end: 20140728
  9. VANCOMYCIN [Concomitant]
     Active Substance: VANCOMYCIN
     Indication: ABDOMINAL INFECTION
     Dosage: UNK
     Route: 042
     Dates: start: 20140813, end: 20140827
  10. ASPIRIN                            /00002701/ [Concomitant]
     Active Substance: ASPIRIN
     Indication: PRODUCT USED FOR UNKNOWN INDICATION
     Route: 065
  11. NORVASC [Concomitant]
     Active Substance: AMLODIPINE BESYLATE
     Indication: HYPERTENSION
     Dosage: 10 MG, QD
     Route: 048
     Dates: start: 20131129
  12. ROCEPHIN [Concomitant]
     Active Substance: CEFTRIAXONE SODIUM
     Indication: BACTERAEMIA
     Dosage: UNK
     Route: 042
     Dates: start: 20140823, end: 20140825
  13. NORVASC [Concomitant]
     Active Substance: AMLODIPINE BESYLATE
     Dosage: 5 MG, QD
     Route: 048
     Dates: start: 20131112, end: 20131128
  14. CEFTIN [Concomitant]
     Active Substance: CEFUROXIME AXETIL
     Indication: URINARY TRACT INFECTION
     Dosage: UNK
     Route: 048
     Dates: start: 20140617, end: 20140629
  15. LEVAQUIN [Concomitant]
     Active Substance: LEVOFLOXACIN
     Dosage: UNK
     Route: 048
     Dates: start: 20140127, end: 20140127
  16. ANCEF [Concomitant]
     Active Substance: CEFAZOLIN SODIUM
     Indication: PROPHYLAXIS
     Dosage: UNK
     Route: 042
     Dates: start: 20140712, end: 20140712
  17. ZOSYN [Concomitant]
     Active Substance: PIPERACILLIN SODIUM\TAZOBACTAM SODIUM
     Indication: PNEUMONIA
     Dosage: UNK
     Route: 042
     Dates: start: 20140801, end: 20140806
  18. AMIODARONE [Concomitant]
     Active Substance: AMIODARONE
     Indication: PRODUCT USED FOR UNKNOWN INDICATION
     Dosage: 200 MG, QD
     Route: 050
  19. ECULIZUMAB [Suspect]
     Active Substance: ECULIZUMAB
     Dosage: 1200 MG, Q2W
     Route: 042
     Dates: start: 20131129, end: 20140219
  20. COREG [Concomitant]
     Active Substance: CARVEDILOL
     Indication: HYPERTENSION
     Dosage: 25 MG, BID
     Route: 048
     Dates: start: 20131105
  21. ZYVOX [Concomitant]
     Active Substance: LINEZOLID
     Indication: PNEUMONIA
     Dosage: UNK
     Route: 050
     Dates: start: 20140801, end: 20140806

REACTIONS (1)
  - Infection [Recovered/Resolved]

NARRATIVE: CASE EVENT DATE: 20140712
